FAERS Safety Report 19374093 (Version 1)
Quarter: 2021Q2

REPORT INFORMATION
  Report Type: Spontaneous
  Country: US (occurrence: US)
  Receive Date: 20210604
  Receipt Date: 20210604
  Transmission Date: 20210717
  Serious: No
  Sender: FDA-Public Use
  Company Number: None

PATIENT
  Age: 69 Year
  Sex: Male

DRUGS (1)
  1. MAVYRET [Suspect]
     Active Substance: GLECAPREVIR\PIBRENTASVIR
     Dosage: ?          OTHER DOSE:300?120;?
     Route: 048
     Dates: start: 202105

REACTIONS (4)
  - Cough [None]
  - Dyspnoea [None]
  - Therapy interrupted [None]
  - Abdominal discomfort [None]

NARRATIVE: CASE EVENT DATE: 20210509
